FAERS Safety Report 4962656-4 (Version None)
Quarter: 2006Q1

REPORT INFORMATION
  Report Type: 
  Country: None (occurrence: None)
  Receive Date: 20060201
  Receipt Date: 20051026
  Transmission Date: 20060701
  Serious: No
  Sender: FDA-Public Use
  Company Number: 2005PV004051

PATIENT
  Age: 70 Year
  Sex: Female
  Weight: 109.7705 kg

DRUGS (13)
  1. BYETTA [Suspect]
     Indication: DIABETES MELLITUS NON-INSULIN-DEPENDENT
     Dosage: 5 MCG, BID;SC
     Route: 058
     Dates: start: 20051005
  2. GLIPIZIDE [Concomitant]
  3. LANTUS [Concomitant]
  4. NEXIUM [Concomitant]
  5. FUROSEMIDE [Concomitant]
  6. NEURONTIN [Concomitant]
  7. OYSTER SHELL CALCIUM [Concomitant]
  8. ZYRTEC [Concomitant]
  9. WARFARIN SODIUM [Concomitant]
  10. PRAVACHOL [Concomitant]
  11. SYNTHROID [Concomitant]
  12. DIOVAN [Concomitant]
  13. TOPROL-XL [Concomitant]

REACTIONS (2)
  - NAUSEA [None]
  - WEIGHT DECREASED [None]
